FAERS Safety Report 7860498-3 (Version None)
Quarter: 2011Q4

REPORT INFORMATION
  Report Type: 
  Country: None (occurrence: None)
  Receive Date: 20111027
  Receipt Date: 20111025
  Transmission Date: 20120403
  Serious: Yes (Life-Threatening)
  Sender: FDA-Public Use
  Company Number: DE-B.I. PHARMACEUTICALS,INC./RIDGEFIELD-2011-DE-05840DE

PATIENT
  Sex: Male

DRUGS (2)
  1. ASPIRIN [Suspect]
     Indication: CORONARY ARTERY DISEASE
  2. PRADAXA [Suspect]
     Indication: ATRIAL FIBRILLATION
     Dosage: 220 MG
     Dates: start: 20111004, end: 20111014

REACTIONS (5)
  - RECTAL HAEMORRHAGE [None]
  - HAEMOGLOBIN DECREASED [None]
  - DISTURBANCE IN ATTENTION [None]
  - HAEMORRHOIDAL HAEMORRHAGE [None]
  - BLOOD PRESSURE DECREASED [None]
